FAERS Safety Report 15533411 (Version 4)
Quarter: 2019Q3

REPORT INFORMATION
  Report Type: Report from Study
  Country: JP (occurrence: JP)
  Receive Date: 20181019
  Receipt Date: 20190813
  Transmission Date: 20191004
  Serious: No
  Sender: FDA-Public Use
  Company Number: JP-ACTELION-A-CH2018-180447

PATIENT
  Age: 63 Year
  Sex: Female

DRUGS (9)
  1. ADCIRCA [Concomitant]
     Active Substance: TADALAFIL
  2. SAMSCA [Concomitant]
     Active Substance: TOLVAPTAN
  3. VOGLIBOSE [Concomitant]
     Active Substance: VOGLIBOSE
  4. THYRADIN S [Concomitant]
     Active Substance: LEVOTHYROXINE SODIUM
  5. OXYGEN. [Concomitant]
     Active Substance: OXYGEN
  6. OPSUMIT [Suspect]
     Active Substance: MACITENTAN
     Indication: PULMONARY ARTERIAL HYPERTENSION
     Dosage: 10 MG, QD
     Route: 048
     Dates: start: 20171215
  7. ALDACTONE A [Concomitant]
     Active Substance: SPIRONOLACTONE
  8. FLOLAN [Concomitant]
     Active Substance: EPOPROSTENOL SODIUM
  9. LASIX [Concomitant]
     Active Substance: FUROSEMIDE

REACTIONS (1)
  - Atrial flutter [Recovering/Resolving]

NARRATIVE: CASE EVENT DATE: 20180928
